FAERS Safety Report 20010566 (Version 1)
Quarter: 2021Q4

REPORT INFORMATION
  Report Type: Spontaneous
  Country: BR (occurrence: BR)
  Receive Date: 20211029
  Receipt Date: 20211029
  Transmission Date: 20220303
  Serious: Yes (Other)
  Sender: FDA-Public Use
  Company Number: BR-NOVARTISPH-NVSC2021BR242944

PATIENT
  Sex: Male

DRUGS (1)
  1. TEGRETOL [Suspect]
     Active Substance: CARBAMAZEPINE
     Indication: Neuralgia
     Dosage: UNK, 6 YEARS AGO
     Route: 065

REACTIONS (7)
  - Interstitial lung disease [Unknown]
  - Dyspnoea exertional [Unknown]
  - Fibrosis [Unknown]
  - Hyperaemia [Unknown]
  - Skin exfoliation [Unknown]
  - Seborrhoeic dermatitis [Unknown]
  - Rash [Unknown]

NARRATIVE: CASE EVENT DATE: 20200601
